FAERS Safety Report 7960186-9 (Version None)
Quarter: 2011Q4

REPORT INFORMATION
  Report Type: 
  Country: None (occurrence: None)
  Receive Date: 20111206
  Receipt Date: 20111201
  Transmission Date: 20120403
  Serious: Yes (Hospitalization, Other)
  Sender: FDA-Public Use
  Company Number: PHHY2011BE91107

PATIENT
  Age: 90 Year
  Sex: Female

DRUGS (3)
  1. ZOLEDRONOC ACID [Suspect]
     Indication: OSTEOPOROSIS
     Dosage: 5 MG, UNK
     Route: 042
     Dates: start: 20100101
  2. CORDARONE [Suspect]
     Dosage: UNK UKN, UNK
  3. ANTIHYPERTENSIVE DRUGS [Concomitant]
     Dosage: UNK UKN, UNK

REACTIONS (6)
  - SYNCOPE [None]
  - EXTRASYSTOLES [None]
  - HYPOTHYROIDISM [None]
  - DYSPNOEA [None]
  - ASTHENIA [None]
  - ATRIAL FIBRILLATION [None]
